FAERS Safety Report 7573058-9 (Version None)
Quarter: 2011Q2

REPORT INFORMATION
  Report Type: 
  Country: None (occurrence: None)
  Receive Date: 20110525
  Receipt Date: 20110505
  Transmission Date: 20111010
  Serious: Yes (Other)
  Sender: FDA-Public Use
  Company Number: 325458

PATIENT
  Age: 58 Year
  Sex: Female
  Weight: 97.1 kg

DRUGS (8)
  1. LEVOTHYROXINE SODIUM [Concomitant]
  2. METFORMIN HCL [Concomitant]
  3. VICTOZA [Suspect]
     Indication: DIABETES MELLITUS
     Dosage: 0.6 MG, SUBCUTANEOUS
     Route: 058
     Dates: start: 20110316, end: 20110319
  4. ALLOPURINOL [Concomitant]
  5. LASIX [Concomitant]
  6. LEVEMIR [Concomitant]
  7. POTASSIUM CHLORIDE [Concomitant]
  8. ALTACE [Concomitant]

REACTIONS (1)
  - ANGIOEDEMA [None]
